FAERS Safety Report 20308353 (Version 2)
Quarter: 2022Q1

REPORT INFORMATION
  Report Type: Spontaneous
  Country: US (occurrence: US)
  Receive Date: 20220107
  Receipt Date: 20220222
  Transmission Date: 20220423
  Serious: Yes (Hospitalization)
  Sender: FDA-Public Use
  Company Number: US-NOVARTISPH-NVSC2021US300319

PATIENT
  Age: 34 Year
  Sex: Male

DRUGS (1)
  1. HYDROCORTISONE [Suspect]
     Active Substance: HYDROCORTISONE
     Indication: Dermatitis atopic
     Dosage: MULTIPLE TIMES DAILY (3-4, QD) (YEARS TO DECADES)
     Route: 061
     Dates: end: 20181006

REACTIONS (4)
  - Steroid withdrawal syndrome [Unknown]
  - Rash [Recovered/Resolved]
  - Malaise [Unknown]
  - Pyrexia [Recovered/Resolved]
